FAERS Safety Report 4636003-1 (Version None)
Quarter: 2005Q2

REPORT INFORMATION
  Report Type: 
  Country: None (occurrence: None)
  Receive Date: 20050331
  Receipt Date: 20040129
  Transmission Date: 20051028
  Serious: Yes (Other)
  Sender: FDA-Public Use
  Company Number: 200410493BCC

PATIENT
  Age: 36 Year
  Sex: Female
  Weight: 44.4525 kg

DRUGS (2)
  1. ALEVE [Suspect]
     Indication: HEADACHE
     Dosage: 220 MG, TOTAL DAILY, ORAL; SEE IMAGE
     Route: 048
     Dates: start: 20040115
  2. ALEVE [Suspect]
     Indication: HEADACHE
     Dosage: 220 MG, TOTAL DAILY, ORAL; SEE IMAGE
     Route: 048
     Dates: start: 20040129

REACTIONS (11)
  - DRY MOUTH [None]
  - DYSKINESIA [None]
  - FEELING JITTERY [None]
  - HYPERSENSITIVITY [None]
  - HYPOAESTHESIA [None]
  - OROPHARYNGEAL SWELLING [None]
  - PARAESTHESIA [None]
  - SKIN TIGHTNESS [None]
  - THROAT IRRITATION [None]
  - THROAT TIGHTNESS [None]
  - TREMOR [None]
